FAERS Safety Report 6114770-8 (Version None)
Quarter: 2009Q1

REPORT INFORMATION
  Report Type: 
  Country: None (occurrence: None)
  Receive Date: 20090313
  Receipt Date: 20090303
  Transmission Date: 20090719
  Serious: Yes (Hospitalization, Other)
  Sender: FDA-Public Use
  Company Number: DE-BAYER-200915480GPV

PATIENT
  Age: 87 Year
  Sex: Female

DRUGS (5)
  1. ASPIRIN [Suspect]
     Indication: DRUG USE FOR UNKNOWN INDICATION
     Route: 048
  2. DIGITOXIN TAB [Concomitant]
     Indication: DRUG USE FOR UNKNOWN INDICATION
  3. METOPROLOL TARTRATE [Concomitant]
     Indication: DRUG USE FOR UNKNOWN INDICATION
  4. METHIZOL [Concomitant]
     Indication: DRUG USE FOR UNKNOWN INDICATION
  5. PROPOFOL [Concomitant]
     Indication: DRUG USE FOR UNKNOWN INDICATION
     Route: 065

REACTIONS (9)
  - COUGH [None]
  - DYSPNOEA [None]
  - HYPERTENSION [None]
  - LOCAL SWELLING [None]
  - OBSTRUCTIVE AIRWAYS DISORDER [None]
  - OEDEMA [None]
  - OXYGEN SATURATION DECREASED [None]
  - PUNCTURE SITE HAEMORRHAGE [None]
  - TACHYCARDIA [None]
